FAERS Safety Report 5094202-1 (Version None)
Quarter: 2006Q3

REPORT INFORMATION
  Report Type: 
  Country: None (occurrence: None)
  Receive Date: 20060830
  Receipt Date: 20060830
  Transmission Date: 20061208
  Serious: Yes (Hospitalization)
  Sender: FDA-Public Use
  Company Number: None

PATIENT
  Age: 40 Year
  Sex: Female

DRUGS (1)
  1. PROCHLORPERAZINE [Suspect]
     Dosage: 5 MG Q6H  PRN IV
     Route: 042
     Dates: start: 20060630

REACTIONS (4)
  - BLOOD PRESSURE DIASTOLIC DECREASED [None]
  - DYSPNOEA [None]
  - HEART RATE INCREASED [None]
  - TACHYPNOEA [None]
